FAERS Safety Report 4363719-7 (Version None)
Quarter: 2004Q2

REPORT INFORMATION
  Report Type: 
  Country: None (occurrence: None)
  Receive Date: 20040524
  Receipt Date: 20040518
  Transmission Date: 20050107
  Serious: Yes (Other)
  Sender: FDA-Public Use
  Company Number: BR-ROCHE-368251

PATIENT
  Age: 14 Year
  Sex: Male
  Weight: 100 kg

DRUGS (2)
  1. ROACUTAN [Suspect]
     Indication: ACNE
     Route: 048
     Dates: start: 20030615, end: 20030615
  2. ROACUTAN [Suspect]
     Route: 048
     Dates: start: 20040415

REACTIONS (4)
  - ACNE [None]
  - HAEMARTHROSIS [None]
  - LIP DRY [None]
  - OEDEMA [None]
